FAERS Safety Report 9265468 (Version 5)
Quarter: 2014Q2

REPORT INFORMATION
  Report Type: Spontaneous
  Country: US (occurrence: US)
  Receive Date: 20130501
  Receipt Date: 20140527
  Transmission Date: 20141212
  Serious: Yes (Other)
  Sender: FDA-Public Use
  Company Number: US-009507513-1304USA017449

PATIENT
  Sex: Male
  Weight: 86.17 kg

DRUGS (2)
  1. PROSCAR [Suspect]
     Indication: ANDROGENETIC ALOPECIA
     Dosage: 5 MG, UNK
     Route: 048
     Dates: start: 20000502, end: 20021018
  2. PROPECIA [Suspect]
     Indication: ANDROGENETIC ALOPECIA
     Dosage: 1 MG, UNK
     Route: 048
     Dates: start: 20030930, end: 20050724

REACTIONS (30)
  - Renal surgery [Unknown]
  - Breast mass [Unknown]
  - Mass excision [Unknown]
  - Lipoma excision [Unknown]
  - Blood testosterone decreased [Unknown]
  - Haematospermia [Unknown]
  - Infection [Unknown]
  - Empty sella syndrome [Unknown]
  - Adverse drug reaction [Unknown]
  - Headache [Unknown]
  - Hypotonia [Unknown]
  - Hernia repair [Unknown]
  - Benign neoplasm of skin [Unknown]
  - Hypothalamo-pituitary disorder [Unknown]
  - Secondary hypogonadism [Not Recovered/Not Resolved]
  - Testicular failure [Unknown]
  - Hypothyroidism [Recovered/Resolved]
  - Growth hormone deficiency [Unknown]
  - Asthenia [Unknown]
  - Poor quality sleep [Unknown]
  - Sexual dysfunction [Not Recovered/Not Resolved]
  - Depression [Unknown]
  - Erectile dysfunction [Not Recovered/Not Resolved]
  - Drug administration error [Unknown]
  - Gynaecomastia [Unknown]
  - Libido decreased [Unknown]
  - Erectile dysfunction [Unknown]
  - Azoospermia [Unknown]
  - Organic erectile dysfunction [Unknown]
  - Premature ejaculation [Unknown]
